FAERS Safety Report 5210268-X (Version None)
Quarter: 2007Q1

REPORT INFORMATION
  Report Type: 
  Country: None (occurrence: None)
  Receive Date: 20070112
  Receipt Date: 20070112
  Transmission Date: 20070707
  Serious: Yes (Hospitalization)
  Sender: FDA-Public Use
  Company Number: None

PATIENT
  Sex: Female

DRUGS (1)
  1. TUBERSOL [Suspect]
     Indication: SKIN TEST
     Dosage: 0.1ML X 1 ID
     Route: 023
     Dates: start: 20070109, end: 20070109

REACTIONS (2)
  - DISCOMFORT [None]
  - PAIN IN EXTREMITY [None]
